FAERS Safety Report 25498670 (Version 1)
Quarter: 2025Q3

REPORT INFORMATION
  Report Type: Spontaneous
  Country: MX (occurrence: MX)
  Receive Date: 20250701
  Receipt Date: 20250701
  Transmission Date: 20251020
  Serious: Yes (Other)
  Sender: AUROBINDO
  Company Number: MX-AUROBINDO-AUR-APL-2025-032162

PATIENT
  Age: 37 Year
  Sex: Male

DRUGS (6)
  1. MEROPENEM [Suspect]
     Active Substance: MEROPENEM
     Indication: Leukocytosis
     Dosage: 1 GRAM, 3 TIMES A DAY
     Route: 065
  2. MEROPENEM [Suspect]
     Active Substance: MEROPENEM
     Indication: Pyrexia
  3. ACETAMINOPHEN [Suspect]
     Active Substance: ACETAMINOPHEN
     Indication: Pyrexia
     Dosage: 1 GRAM, 3 TIMES A DAY
     Route: 065
  4. ACETAMINOPHEN [Suspect]
     Active Substance: ACETAMINOPHEN
     Indication: Leukocytosis
  5. CIPROFLOXACIN [Concomitant]
     Active Substance: CIPROFLOXACIN
     Indication: Product used for unknown indication
     Route: 065
  6. TAMSULOSIN [Concomitant]
     Active Substance: TAMSULOSIN
     Indication: Product used for unknown indication
     Dosage: 0.4 MILLIGRAM, TWO TIMES A DAY
     Route: 065

REACTIONS (1)
  - Drug ineffective [Unknown]
